FAERS Safety Report 13635203 (Version 2)
Quarter: 2017Q3

REPORT INFORMATION
  Report Type: Spontaneous
  Country: US (occurrence: US)
  Receive Date: 20170609
  Receipt Date: 20170721
  Transmission Date: 20171127
  Serious: No
  Sender: FDA-Public Use
  Company Number: US-PFIZER INC-2017248553

PATIENT
  Age: 45 Year
  Sex: Female

DRUGS (1)
  1. XELJANZ [Suspect]
     Active Substance: TOFACITINIB CITRATE
     Dosage: 5 MG, UNK

REACTIONS (18)
  - Product use in unapproved indication [Unknown]
  - Skin discolouration [Unknown]
  - Osteoarthritis [Unknown]
  - Fatigue [Unknown]
  - Joint swelling [Unknown]
  - Tenosynovitis [Unknown]
  - Pain [Unknown]
  - Arthralgia [Unknown]
  - Joint stiffness [Unknown]
  - Condition aggravated [Unknown]
  - Pain in extremity [Unknown]
  - Tenderness [Unknown]
  - Dry eye [Unknown]
  - Joint dislocation [Unknown]
  - Musculoskeletal stiffness [Unknown]
  - Peripheral swelling [Unknown]
  - Musculoskeletal discomfort [Unknown]
  - Joint range of motion decreased [Unknown]
